FAERS Safety Report 13609031 (Version 3)
Quarter: 2017Q3

REPORT INFORMATION
  Report Type: Spontaneous
  Country: US (occurrence: US)
  Receive Date: 20170602
  Receipt Date: 20170725
  Transmission Date: 20171127
  Serious: Yes (Other)
  Sender: FDA-Public Use
  Company Number: US-BAYER-2017-098179

PATIENT
  Age: 58 Year
  Sex: Female
  Weight: 60.32 kg

DRUGS (2)
  1. CIPRO [Suspect]
     Active Substance: CIPROFLOXACIN HYDROCHLORIDE
     Indication: LOCALISED INFECTION
     Dosage: UNK
     Route: 042
     Dates: start: 20170120, end: 20170201
  2. CIPRO [Suspect]
     Active Substance: CIPROFLOXACIN HYDROCHLORIDE
     Indication: DIABETIC FOOT
     Dosage: 500 MG, BID
     Dates: start: 20161022

REACTIONS (6)
  - Extremity necrosis [None]
  - Contraindicated drug prescribed [None]
  - Localised infection [None]
  - Toe amputation [None]
  - Documented hypersensitivity to administered product [None]
  - Skin ulcer [None]
